FAERS Safety Report 24795735 (Version 1)
Quarter: 2025Q1

REPORT INFORMATION
  Report Type: Spontaneous
  Country: US (occurrence: US)
  Receive Date: 20250101
  Receipt Date: 20250101
  Transmission Date: 20250409
  Serious: No
  Sender: SUNOVION
  Company Number: US-SUMITOMO PHARMA SWITZERLAND GMBH-2024SPA006082

PATIENT

DRUGS (2)
  1. GEMTESA [Suspect]
     Active Substance: VIBEGRON
     Indication: Incontinence
     Route: 048
  2. GEMTESA [Suspect]
     Active Substance: VIBEGRON
     Indication: Pollakiuria

REACTIONS (6)
  - Insomnia [Unknown]
  - Pollakiuria [Unknown]
  - Nocturia [Unknown]
  - Urinary incontinence [Unknown]
  - Rash [Unknown]
  - Drug effect less than expected [Unknown]
